FAERS Safety Report 7562830-7 (Version None)
Quarter: 2011Q2

REPORT INFORMATION
  Report Type: 
  Country: None (occurrence: None)
  Receive Date: 20110622
  Receipt Date: 20110615
  Transmission Date: 20111010
  Serious: Yes (Hospitalization)
  Sender: FDA-Public Use
  Company Number: BR-ROCHE-744030

PATIENT
  Sex: Female
  Weight: 100 kg

DRUGS (7)
  1. METHOTREXATE [Suspect]
     Route: 065
  2. TOCILIZUMAB [Suspect]
     Indication: RHEUMATOID ARTHRITIS
     Dosage: FORM : INFUSION
     Route: 042
     Dates: start: 20101020
  3. OXYCONTIN [Concomitant]
  4. DIAZEPAM [Suspect]
     Route: 065
  5. METHOTREXATE [Suspect]
     Route: 065
  6. AMARYL [Concomitant]
  7. FLUOXETINE HCL [Concomitant]

REACTIONS (11)
  - PAROTITIS [None]
  - MEMORY IMPAIRMENT [None]
  - CELLULITIS [None]
  - CONFUSIONAL STATE [None]
  - PAIN [None]
  - OEDEMA PERIPHERAL [None]
  - SKIN HAEMORRHAGE [None]
  - HYPERSENSITIVITY [None]
  - ROAD TRAFFIC ACCIDENT [None]
  - FATIGUE [None]
  - DRUG INEFFECTIVE [None]
